FAERS Safety Report 6274715-7 (Version None)
Quarter: 2009Q3

REPORT INFORMATION
  Report Type: 
  Country: None (occurrence: None)
  Receive Date: 20090721
  Receipt Date: 20090713
  Transmission Date: 20100115
  Serious: Yes (Hospitalization)
  Sender: FDA-Public Use
  Company Number: US-BIOGENIDEC-2009BI021744

PATIENT
  Age: 65 Year
  Sex: Female

DRUGS (3)
  1. AVONEX [Suspect]
     Indication: MULTIPLE SCLEROSIS
     Route: 030
     Dates: start: 20070301
  2. AVONEX [Suspect]
     Route: 030
     Dates: start: 20000601, end: 20030801
  3. AVONEX [Suspect]
     Route: 030
     Dates: start: 20030801, end: 20040101

REACTIONS (1)
  - BREAST CANCER [None]
